FAERS Safety Report 19022622 (Version 2)
Quarter: 2023Q4

REPORT INFORMATION
  Report Type: Spontaneous
  Country: GB (occurrence: GB)
  Receive Date: 20210317
  Receipt Date: 20231013
  Transmission Date: 20240109
  Serious: Yes (Death, Other)
  Sender: FDA-Public Use
  Company Number: GB-PFIZER INC-2021177660

PATIENT
  Age: 22 Year
  Sex: Female

DRUGS (8)
  1. CUBICIN [Suspect]
     Active Substance: DAPTOMYCIN
     Dosage: UNK
  2. CYCLOSPORINE [Suspect]
     Active Substance: CYCLOSPORINE
     Dosage: UNK
  3. MEROPENEM [Suspect]
     Active Substance: MEROPENEM
     Dosage: UNK
  4. CANCIDAS [Concomitant]
     Active Substance: CASPOFUNGIN ACETATE
  5. CASPOFUNGIN ACETATE [Concomitant]
     Active Substance: CASPOFUNGIN ACETATE
  6. LEVETIRACETAM [Concomitant]
     Active Substance: LEVETIRACETAM
  7. THIOPENTAL [Concomitant]
     Active Substance: THIOPENTAL
  8. TRANEXAMIC ACID [Concomitant]
     Active Substance: TRANEXAMIC ACID

REACTIONS (7)
  - Death [Fatal]
  - Haemorrhage intracranial [Fatal]
  - Seizure [Fatal]
  - Enterococcal sepsis [Fatal]
  - Brain oedema [Fatal]
  - Nosocomial infection [Fatal]
  - Fungal infection [Fatal]

NARRATIVE: CASE EVENT DATE: 20080616
